FAERS Safety Report 18203669 (Version 1)
Quarter: 2020Q3

REPORT INFORMATION
  Report Type: Spontaneous
  Country: US (occurrence: US)
  Receive Date: 20200827
  Receipt Date: 20200827
  Transmission Date: 20201103
  Serious: No
  Sender: FDA-Public Use
  Company Number: US-TARO-2019TAR00832

PATIENT
  Age: 90 Year
  Sex: Female
  Weight: 61.68 kg

DRUGS (18)
  1. ASTELIN [Concomitant]
     Active Substance: AZELASTINE HYDROCHLORIDE
  2. HYDROCORTISONE. [Concomitant]
     Active Substance: HYDROCORTISONE
  3. DETROL LA [Concomitant]
     Active Substance: TOLTERODINE TARTRATE
  4. HYDROCODONE?ACETAMINOPHEN [Suspect]
     Active Substance: ACETAMINOPHEN\HYDROCODONE
  5. COLCHICINE. [Suspect]
     Active Substance: COLCHICINE
  6. SULFA (SULFONAMIDE ANTIBIOTICS) [Suspect]
     Active Substance: UNSPECIFIED INGREDIENT
  7. IODINE. [Suspect]
     Active Substance: IODINE
  8. UNSPECIFIED STEROID CREAM [Concomitant]
  9. COLCHICINE ANALOGUES [Suspect]
     Active Substance: UNSPECIFIED INGREDIENT
  10. SHINGRIX [Concomitant]
     Active Substance: RECOMBINANT VARICELLA ZOSTER VIRUS (VZV) GLYCOPROTEIN E
  11. NORVASC [Concomitant]
     Active Substance: AMLODIPINE BESYLATE
  12. ULTRAVATE [Concomitant]
     Active Substance: HALOBETASOL PROPIONATE
  13. GABAPENTIN. [Suspect]
     Active Substance: GABAPENTIN
  14. THIMEROSAL [Suspect]
     Active Substance: THIMEROSAL
  15. LYRICA [Concomitant]
     Active Substance: PREGABALIN
  16. LAMISIL [Suspect]
     Active Substance: TERBINAFINE HYDROCHLORIDE
     Dosage: UNK UNK, 2X/DAY
     Dates: start: 20191126, end: 20191203
  17. LAMISIL [Suspect]
     Active Substance: TERBINAFINE HYDROCHLORIDE
     Indication: FUNGAL SKIN INFECTION
     Dosage: UNK UNK, 2X/DAY
     Route: 061
     Dates: start: 20191126, end: 20191201
  18. NEOMYCIN. [Suspect]
     Active Substance: NEOMYCIN

REACTIONS (9)
  - Drug ineffective for unapproved indication [Recovered/Resolved]
  - Fungal skin infection [Not Recovered/Not Resolved]
  - Drug hypersensitivity [Unknown]
  - Rash [Unknown]
  - Pruritus [Not Recovered/Not Resolved]
  - Inappropriate schedule of product administration [Recovered/Resolved]
  - Product administered at inappropriate site [Recovered/Resolved]
  - Fungal infection [Not Recovered/Not Resolved]
  - Diarrhoea [Unknown]

NARRATIVE: CASE EVENT DATE: 2019
